FAERS Safety Report 11573379 (Version 1)
Quarter: 2015Q3

REPORT INFORMATION
  Report Type: Spontaneous
  Country: US (occurrence: US)
  Receive Date: 20150929
  Receipt Date: 20150929
  Transmission Date: 20151125
  Serious: Yes (Death)
  Sender: FDA-Public Use
  Company Number: US-BAYER-2015-428725

PATIENT
  Age: 69 Year
  Sex: Male

DRUGS (1)
  1. BAYER LOW DOSE [Suspect]
     Active Substance: ASPIRIN
     Indication: CARDIAC DISORDER
     Dosage: 1 DF, QD
     Route: 048
     Dates: start: 2008, end: 20150408

REACTIONS (2)
  - Product use issue [None]
  - Neoplasm malignant [Fatal]

NARRATIVE: CASE EVENT DATE: 2008
